FAERS Safety Report 17003289 (Version 1)
Quarter: 2019Q4

REPORT INFORMATION
  Report Type: Spontaneous
  Country: US (occurrence: US)
  Receive Date: 20191107
  Receipt Date: 20191107
  Transmission Date: 20200122
  Serious: No
  Sender: FDA-Public Use
  Company Number: US-ALLERGAN-1922492US

PATIENT
  Age: 52 Year
  Sex: Female
  Weight: 58.96 kg

DRUGS (5)
  1. PROGESTERON [Concomitant]
     Active Substance: PROGESTERONE
     Dosage: 100 MG, QD
     Dates: start: 201809
  2. NUMBING DROPS [Suspect]
     Active Substance: UNSPECIFIED INGREDIENT
  3. ALPHAGAN P [Suspect]
     Active Substance: BRIMONIDINE TARTRATE
     Indication: PIGMENTARY GLAUCOMA
     Dosage: 2 GTT, BID
     Dates: start: 20190509, end: 20190523
  4. TRETINOIN. [Concomitant]
     Active Substance: TRETINOIN
     Dosage: UNK
  5. VIVELLE-DOT [Concomitant]
     Active Substance: ESTRADIOL
     Indication: NIGHT SWEATS
     Dosage: 0.015 MG, BI-WEEKLY
     Dates: start: 201310

REACTIONS (5)
  - Pain in extremity [Recovered/Resolved]
  - Fatigue [Recovered/Resolved]
  - Eye pain [Recovered/Resolved]
  - Peripheral venous disease [Recovered/Resolved]
  - Drug ineffective [Unknown]

NARRATIVE: CASE EVENT DATE: 201905
